FAERS Safety Report 26044783 (Version 1)
Quarter: 2025Q4

REPORT INFORMATION
  Report Type: Report from Study
  Country: US (occurrence: US)
  Receive Date: 20251114
  Receipt Date: 20251114
  Transmission Date: 20260117
  Serious: Yes (Other)
  Sender: ALEXION PHARMACEUTICALS
  Company Number: 2023A008675

PATIENT
  Sex: Female

DRUGS (2)
  1. OSIMERTINIB [Suspect]
     Active Substance: OSIMERTINIB
     Indication: Lung carcinoma cell type unspecified stage I
     Dosage: 80 MILLIGRAM, QD
     Dates: start: 202009
  2. OXYCODONE [Concomitant]
     Active Substance: OXYCODONE
     Route: 065

REACTIONS (4)
  - Dehydration [Unknown]
  - Loss of consciousness [Unknown]
  - Compression fracture [Unknown]
  - Road traffic accident [Unknown]
